FAERS Safety Report 10262192 (Version 1)
Quarter: 2014Q2

REPORT INFORMATION
  Report Type: Report from Study
  Country: RS (occurrence: RS)
  Receive Date: 20140626
  Receipt Date: 20140626
  Transmission Date: 20141212
  Serious: Yes (Other)
  Sender: FDA-Public Use
  Company Number: RS-GLAXOSMITHKLINE-B1007030A

PATIENT
  Sex: 0

DRUGS (2)
  1. LAMOTRIGINE [Suspect]
     Indication: JUVENILE MYOCLONIC EPILEPSY
     Route: 064
  2. VALPROATE [Suspect]
     Indication: JUVENILE MYOCLONIC EPILEPSY
     Route: 064

REACTIONS (2)
  - Deafness neurosensory [Unknown]
  - Foetal exposure during pregnancy [Unknown]
